FAERS Safety Report 8356315-8 (Version None)
Quarter: 2012Q2

REPORT INFORMATION
  Report Type: 
  Country: None (occurrence: None)
  Receive Date: 20120510
  Receipt Date: 20120504
  Transmission Date: 20120825
  Serious: Yes (Life-Threatening, Hospitalization, Other)
  Sender: FDA-Public Use
  Company Number: CL-407-2012

PATIENT
  Age: 35 Year
  Sex: Female
  Weight: 50 kg

DRUGS (2)
  1. ONDANSETRON [Suspect]
     Indication: ANAESTHETIC PREMEDICATION
     Dosage: 4MG ONCE INTRAVENOUS
  2. TRAMADOL HYDROCHLORIDE [Suspect]
     Indication: ANAESTHETIC PREMEDICATION
     Dosage: 100MG ONCE INTRAVENOUS
     Route: 042

REACTIONS (2)
  - GRAND MAL CONVULSION [None]
  - DRUG INTERACTION [None]
